FAERS Safety Report 17093637 (Version 1)
Quarter: 2019Q4

REPORT INFORMATION
  Report Type: Spontaneous
  Country: NL (occurrence: NL)
  Receive Date: 20191129
  Receipt Date: 20191129
  Transmission Date: 20200122
  Serious: Yes (Hospitalization, Other)
  Sender: FDA-Public Use
  Company Number: NL-VISTAPHARM, INC.-VER201911-001362

PATIENT
  Age: 37 Year
  Sex: Male

DRUGS (1)
  1. METHADONE [Suspect]
     Active Substance: METHADONE HYDROCHLORIDE
     Indication: PRODUCT USED FOR UNKNOWN INDICATION
     Dosage: 15 TABLETS OF 5 MG

REACTIONS (6)
  - Deafness bilateral [Recovered/Resolved]
  - Respiratory rate decreased [Unknown]
  - Tinnitus [Unknown]
  - Accidental overdose [Unknown]
  - Confusional state [Unknown]
  - Nausea [Unknown]
